FAERS Safety Report 10332132 (Version 1)
Quarter: 2014Q3

REPORT INFORMATION
  Report Type: Spontaneous
  Country: JP (occurrence: JP)
  Receive Date: 20140722
  Receipt Date: 20140722
  Transmission Date: 20150326
  Serious: Yes (Death, Other)
  Sender: FDA-Public Use
  Company Number: JP-BRISTOL-MYERS SQUIBB COMPANY-21222005

PATIENT
  Age: 61 Year
  Sex: Male

DRUGS (3)
  1. SERENACE [Suspect]
     Active Substance: HALOPERIDOL
     Dosage: INJECTION
     Route: 030
     Dates: start: 20140709, end: 20140711
  2. ABILIFY DISCMELT [Suspect]
     Active Substance: ARIPIPRAZOLE
     Indication: SCHIZOPHRENIA
     Route: 048
     Dates: start: 20140711, end: 20140712
  3. ZOTEPINE [Suspect]
     Active Substance: ZOTEPINE
     Route: 048
     Dates: start: 20140711, end: 20140712

REACTIONS (1)
  - Acute myocardial infarction [Fatal]

NARRATIVE: CASE EVENT DATE: 20140712
